FAERS Safety Report 23084102 (Version 1)
Quarter: 2023Q4

REPORT INFORMATION
  Report Type: Spontaneous
  Country: US (occurrence: US)
  Receive Date: 20231019
  Receipt Date: 20231019
  Transmission Date: 20240109
  Serious: Yes (Other)
  Sender: FDA-Public Use
  Company Number: US-MYLANLABS-2023M1108844

PATIENT
  Age: 53 Year
  Sex: Female

DRUGS (6)
  1. TRASTUZUMAB [Suspect]
     Active Substance: TRASTUZUMAB
     Indication: HER2 positive breast cancer
     Dosage: UNK, CYCLE
     Route: 065
     Dates: start: 2014
  2. TRASTUZUMAB [Suspect]
     Active Substance: TRASTUZUMAB
     Indication: Hormone receptor positive breast cancer
  3. PERTUZUMAB [Suspect]
     Active Substance: PERTUZUMAB
     Indication: HER2 positive breast cancer
     Dosage: UNK, CYCLE
     Route: 065
     Dates: start: 2014
  4. PERTUZUMAB [Suspect]
     Active Substance: PERTUZUMAB
     Indication: Hormone receptor positive breast cancer
  5. DOCETAXEL [Concomitant]
     Active Substance: DOCETAXEL
     Indication: HER2 positive breast cancer
     Dosage: UNK, CYCLE
     Route: 065
     Dates: start: 2014
  6. DOCETAXEL [Concomitant]
     Active Substance: DOCETAXEL
     Indication: Hormone receptor positive breast cancer

REACTIONS (2)
  - Pulmonary arterial hypertension [Unknown]
  - Right ventricular failure [Unknown]
